FAERS Safety Report 6581711-9 (Version None)
Quarter: 2010Q1

REPORT INFORMATION
  Report Type: 
  Country: None (occurrence: None)
  Receive Date: 20100215
  Receipt Date: 20100211
  Transmission Date: 20100710
  Serious: Yes (Other)
  Sender: FDA-Public Use
  Company Number: FR-TEVA-223994ISR

PATIENT
  Sex: Female

DRUGS (7)
  1. FLUOROURACIL [Suspect]
     Indication: BREAST CANCER
     Route: 042
     Dates: start: 19970101, end: 19970101
  2. EPIRUBICIN [Suspect]
     Indication: BREAST CANCER
     Route: 042
     Dates: start: 19970101, end: 19970101
  3. CYCLOPHOSPHAMIDE [Suspect]
     Indication: BREAST CANCER
     Route: 042
     Dates: start: 19970101, end: 19970101
  4. ONDANSETRON HYDROCHLORIDE [Suspect]
     Indication: PREMEDICATION
     Route: 042
     Dates: start: 19970101, end: 19970101
  5. TAMOXIFEN CITRATE [Suspect]
     Indication: BREAST CANCER
     Route: 048
  6. GLIMEPIRIDE [Concomitant]
     Indication: TYPE 2 DIABETES MELLITUS
     Route: 048
  7. METFORMIN HYDROCHLORIDE [Concomitant]
     Indication: TYPE 2 DIABETES MELLITUS
     Route: 048

REACTIONS (1)
  - CONGESTIVE CARDIOMYOPATHY [None]
